FAERS Safety Report 14014780 (Version 1)
Quarter: 2017Q3

REPORT INFORMATION
  Report Type: Spontaneous
  Country: US (occurrence: None)
  Receive Date: 20170927
  Receipt Date: 20170927
  Transmission Date: 20171128
  Serious: Yes (Hospitalization)
  Sender: FDA-Public Use
  Company Number: None

PATIENT
  Age: 6 Year
  Sex: Male
  Weight: 21.4 kg

DRUGS (4)
  1. DEXAMETHASONE. [Suspect]
     Active Substance: DEXAMETHASONE
     Dates: end: 20170808
  2. METHOTREXATE. [Concomitant]
     Active Substance: METHOTREXATE
     Dates: end: 20170914
  3. MERCAPTOPURINE. [Suspect]
     Active Substance: MERCAPTOPURINE
     Dates: end: 20170916
  4. VINCRISTINE SULFATE. [Concomitant]
     Active Substance: VINCRISTINE SULFATE
     Dates: end: 20170901

REACTIONS (5)
  - Fungal infection [None]
  - Lung infiltration [None]
  - Pyrexia [None]
  - Tachypnoea [None]
  - Hypoxia [None]

NARRATIVE: CASE EVENT DATE: 20170918
